FAERS Safety Report 8203675-4 (Version None)
Quarter: 2012Q1

REPORT INFORMATION
  Report Type: 
  Country: None (occurrence: None)
  Receive Date: 20120308
  Receipt Date: 20120227
  Transmission Date: 20120608
  Serious: Yes (Death)
  Sender: FDA-Public Use
  Company Number: DSU-2012-00025

PATIENT

DRUGS (3)
  1. JANUVIA [Concomitant]
  2. METFORMIN (METFORMIN)(TABLET) (METFORMIN) [Concomitant]
  3. AZOR [Suspect]
     Indication: HYPERTENSION
     Dosage: 5 (20 MG (1 IN 1 D), PER ORAL
     Route: 048
     Dates: start: 20100907

REACTIONS (1)
  - MICROALBUMINURIA [None]
